FAERS Safety Report 8085377-0 (Version None)
Quarter: 2012Q1

REPORT INFORMATION
  Report Type: 
  Country: None (occurrence: None)
  Receive Date: 20120128
  Receipt Date: 20110519
  Transmission Date: 20120608
  Serious: No
  Sender: FDA-Public Use
  Company Number: PR-ABBOTT-11P-131-0724399-00

PATIENT
  Sex: Female

DRUGS (7)
  1. INDERAL [Concomitant]
     Indication: PALPITATIONS
     Route: 048
  2. CYMBALTA [Concomitant]
     Indication: ARTHRITIS
  3. HUMIRA [Suspect]
     Indication: PRODUCT USED FOR UNKNOWN INDICATION
     Route: 058
     Dates: start: 20110428
  4. COZAAR [Concomitant]
     Indication: HYPERTENSION
     Route: 048
  5. VITAMIN D [Concomitant]
     Indication: ARTHRITIS
     Dosage: 50,000 UNITS
  6. METHOTREXATE [Concomitant]
     Dosage: 10MG -4 TABS WEEKLY
  7. FOLIC ACID [Concomitant]
     Indication: RHEUMATOID ARTHRITIS

REACTIONS (6)
  - PRURITUS [None]
  - SOMNOLENCE [None]
  - ROAD TRAFFIC ACCIDENT [None]
  - INFLUENZA LIKE ILLNESS [None]
  - ARTHRALGIA [None]
  - DRY MOUTH [None]
